FAERS Safety Report 14045867 (Version 1)
Quarter: 2017Q4

REPORT INFORMATION
  Report Type: Spontaneous
  Country: US (occurrence: US)
  Receive Date: 20171005
  Receipt Date: 20171005
  Transmission Date: 20180321
  Serious: No
  Sender: FDA-Public Use
  Company Number: US-INDIVIOR LIMITED-INDV-094631-2016

PATIENT
  Age: 35 Year
  Sex: Female

DRUGS (3)
  1. SUBOXONE [Suspect]
     Active Substance: BUPRENORPHINE HYDROCHLORIDE\NALOXONE HYDROCHLORIDE
     Dosage: TAKING LESS THAN THE PRESCRIBED BY CUTTING FILM INTO PIECES
     Route: 060
  2. SUBOXONE [Suspect]
     Active Substance: BUPRENORPHINE HYDROCHLORIDE\NALOXONE HYDROCHLORIDE
     Indication: DRUG USE DISORDER
     Dosage: 8MG, DAILY
     Route: 060
     Dates: start: 2015
  3. BUPRENORPHINE/NALOXONE GENERIC [Suspect]
     Active Substance: BUPRENORPHINE\NALOXONE
     Indication: DRUG USE DISORDER
     Dosage: UNK, DAILY FOR ABOUT SIX WEEKS
     Route: 060

REACTIONS (4)
  - Acne [Recovered/Resolved]
  - Intentional underdose [Not Recovered/Not Resolved]
  - Urticaria [Recovered/Resolved]
  - Product preparation error [Not Recovered/Not Resolved]
